FAERS Safety Report 7912969-9 (Version None)
Quarter: 2011Q4

REPORT INFORMATION
  Report Type: 
  Country: None (occurrence: None)
  Receive Date: 20111114
  Receipt Date: 20111103
  Transmission Date: 20120403
  Serious: Yes (Hospitalization)
  Sender: FDA-Public Use
  Company Number: US-BAYER-2011-003131

PATIENT
  Age: 27 Year
  Sex: Female

DRUGS (1)
  1. YAZ [Suspect]
     Indication: CONTRACEPTION
     Dosage: UNK
     Dates: start: 20060201, end: 20070101

REACTIONS (9)
  - CHOLECYSTITIS CHRONIC [None]
  - PANCREATITIS [None]
  - CHOLELITHIASIS [None]
  - BILE DUCT STONE [None]
  - ABDOMINAL PAIN [None]
  - ANXIETY [None]
  - EMOTIONAL DISTRESS [None]
  - PAIN [None]
  - VOMITING [None]
